FAERS Safety Report 5514236-X (Version None)
Quarter: 2007Q4

REPORT INFORMATION
  Report Type: 
  Country: None (occurrence: None)
  Receive Date: 20071113
  Receipt Date: 20071108
  Transmission Date: 20080405
  Serious: Yes (Life-Threatening)
  Sender: FDA-Public Use
  Company Number: CH-NOVOPROD-269215

PATIENT
  Age: 19 Year
  Sex: Male
  Weight: 59 kg

DRUGS (1)
  1. ACTRAPID [Suspect]
     Indication: MEDICATION ERROR
     Dosage: UNK, SINGLE
     Route: 042
     Dates: start: 20070406, end: 20070406

REACTIONS (3)
  - BRADYCARDIA [None]
  - HYPOGLYCAEMIC COMA [None]
  - WRONG DRUG ADMINISTERED [None]
